FAERS Safety Report 8421220-5 (Version None)
Quarter: 2012Q2

REPORT INFORMATION
  Report Type: 
  Country: None (occurrence: None)
  Receive Date: 20120608
  Receipt Date: 20120601
  Transmission Date: 20120825
  Serious: Yes (Hospitalization, Other)
  Sender: FDA-Public Use
  Company Number: US-BAYER-2012-024515

PATIENT
  Age: 29 Year
  Sex: Female

DRUGS (6)
  1. YAZ [Suspect]
     Dosage: UNK
     Dates: start: 20071101
  2. YASMIN [Suspect]
     Dosage: UNK
     Dates: start: 20071101
  3. TAMIFLU [Concomitant]
     Dosage: 75 MG, UNK
     Dates: start: 20100427
  4. AZITHROMYCIN [Concomitant]
     Dosage: 250 MG, UNK
     Dates: start: 20100427
  5. PROMETHAZINE W/ CODEINE [Concomitant]
     Dosage: UNK
     Dates: start: 20100427
  6. PROAIR HFA [Concomitant]
     Route: 045

REACTIONS (3)
  - PULMONARY EMBOLISM [None]
  - THROMBOSIS [None]
  - DEEP VEIN THROMBOSIS [None]
